FAERS Safety Report 8972312 (Version 1)
Quarter: 2012Q4

REPORT INFORMATION
  Report Type: Spontaneous
  Country: US (occurrence: None)
  Receive Date: 20121211
  Receipt Date: 20121211
  Transmission Date: 20130627
  Serious: Yes (Other)
  Sender: FDA-Public Use
  Company Number: 2012-01347

PATIENT
  Age: 64 Year
  Sex: Male
  Weight: 97.52 kg

DRUGS (9)
  1. AMLODIPINE BESYLATE + BENAZEPRIL [Suspect]
     Indication: HYPERTENSION
     Dosage: 10mg/40mg (1 in 1 D), Per oral
     Dates: start: 201202, end: 201203
  2. BUPROPION SR 150 MYLAN [Concomitant]
  3. EXENATIDE (BYETTA) [Concomitant]
  4. GLIMEPIRIDE [Concomitant]
  5. METFORMIN [Concomitant]
  6. SERTRALINE [Concomitant]
  7. SIMVASTATIN [Concomitant]
  8. TERAZOSIN [Concomitant]
  9. FENOFIBRATE (TRICOR) [Concomitant]

REACTIONS (4)
  - Atrial fibrillation [None]
  - Palpitations [None]
  - Fatigue [None]
  - Vertigo [None]
